FAERS Safety Report 19662045 (Version 1)
Quarter: 2021Q3

REPORT INFORMATION
  Report Type: Spontaneous
  Country: US (occurrence: US)
  Receive Date: 20210805
  Receipt Date: 20210805
  Transmission Date: 20211014
  Serious: Yes (Death)
  Sender: FDA-Public Use
  Company Number: US-SA-2021SA255289

PATIENT
  Age: 4 Year
  Sex: Female

DRUGS (8)
  1. CLOFARABINE. [Suspect]
     Active Substance: CLOFARABINE
     Indication: LANGERHANS^ CELL HISTIOCYTOSIS
     Dosage: UNK UNK, QCY
     Dates: start: 2019
  2. 6?MERCAPTOPURINE MONOHYDRATE [Concomitant]
     Active Substance: MERCAPTOPURINE
     Dosage: UNK
     Dates: start: 2018, end: 2018
  3. VINBLASTINE [Concomitant]
     Active Substance: VINBLASTINE
     Indication: LANGERHANS^ CELL HISTIOCYTOSIS
     Dosage: UNK
     Dates: start: 2019
  4. TRIAMCINOLONE [Concomitant]
     Active Substance: TRIAMCINOLONE
     Indication: LANGERHANS^ CELL HISTIOCYTOSIS
     Dosage: UNK
     Dates: start: 2019
  5. PREDNISOLONE. [Concomitant]
     Active Substance: PREDNISOLONE
     Indication: LANGERHANS^ CELL HISTIOCYTOSIS
     Dosage: UNK
     Dates: start: 2019
  6. 6?MERCAPTOPURINE MONOHYDRATE [Concomitant]
     Active Substance: MERCAPTOPURINE
     Indication: ACUTE LYMPHOCYTIC LEUKAEMIA
     Dosage: ~80 MG/M2 QD
     Route: 048
     Dates: start: 20181204
  7. METHOTREXATE. [Concomitant]
     Active Substance: METHOTREXATE
     Dosage: UNK
     Route: 037
     Dates: start: 2018, end: 2018
  8. METHOTREXATE. [Concomitant]
     Active Substance: METHOTREXATE
     Indication: ACUTE LYMPHOCYTIC LEUKAEMIA
     Dosage: 12.5 MG, QW ( ? 20 MG/M2).
     Route: 048
     Dates: start: 20181204

REACTIONS (3)
  - Disease progression [Fatal]
  - Drug ineffective [Fatal]
  - Toxicity to various agents [Unknown]

NARRATIVE: CASE EVENT DATE: 2019
